FAERS Safety Report 4383034-5 (Version None)
Quarter: 2004Q2

REPORT INFORMATION
  Report Type: 
  Country: None (occurrence: None)
  Receive Date: 20040527
  Receipt Date: 20030409
  Transmission Date: 20050107
  Serious: Yes (Hospitalization, Other)
  Sender: FDA-Public Use
  Company Number: 2003014530

PATIENT
  Age: 20 Year

DRUGS (2)
  1. VIRACEPT [Suspect]
     Indication: ILL-DEFINED DISORDER
     Dates: end: 20030301
  2. ZIDOVUDINE [Suspect]
     Indication: ILL-DEFINED DISORDER
     Dates: end: 20030301

REACTIONS (3)
  - ABDOMINAL PAIN [None]
  - DIARRHOEA [None]
  - HEPATITIS [None]
